FAERS Safety Report 4463719-2 (Version None)
Quarter: 2004Q3

REPORT INFORMATION
  Report Type: 
  Country: None (occurrence: None)
  Receive Date: 20040929
  Receipt Date: 20040913
  Transmission Date: 20050211
  Serious: Yes (Hospitalization)
  Sender: FDA-Public Use
  Company Number: FR_040904759

PATIENT
  Age: 72 Year
  Sex: Female
  Weight: 60 kg

DRUGS (5)
  1. GEMZAR [Suspect]
     Indication: ADENOCARCINOMA PANCREAS
     Route: 042
     Dates: start: 20030812, end: 20040201
  2. FOLIC ACID [Concomitant]
  3. FLUOROURACIL [Concomitant]
  4. IRINOTECAN [Concomitant]
  5. ELOXATIN [Concomitant]

REACTIONS (9)
  - ADENOCARCINOMA PANCREAS [None]
  - ANAEMIA [None]
  - DIARRHOEA [None]
  - HAEMOLYTIC URAEMIC SYNDROME [None]
  - MALIGNANT NEOPLASM PROGRESSION [None]
  - RENAL FAILURE [None]
  - RETINAL VEIN THROMBOSIS [None]
  - THROMBOCYTOPENIA [None]
  - VISION BLURRED [None]
